FAERS Safety Report 8957652 (Version 1)
Quarter: 2012Q4

REPORT INFORMATION
  Report Type: 
  Country: US (occurrence: US)
  Receive Date: 20121211
  Receipt Date: 20121211
  Transmission Date: 20130627
  Serious: No
  Sender: FDA-Public Use
  Company Number: US-BIOGENIDEC-2012BI057601

PATIENT
  Sex: Female

DRUGS (2)
  1. AVONEX [Suspect]
     Indication: MULTIPLE SCLEROSIS
     Route: 030
     Dates: start: 19960715, end: 20071125
  2. AVONEX [Suspect]
     Indication: MULTIPLE SCLEROSIS
     Route: 030
     Dates: start: 20090802

REACTIONS (5)
  - Tremor [Unknown]
  - Sinusitis [Unknown]
  - Balance disorder [Unknown]
  - Influenza like illness [Recovered/Resolved]
  - Multiple sclerosis relapse [Unknown]
